FAERS Safety Report 5393680-8 (Version None)
Quarter: 2007Q3

REPORT INFORMATION
  Report Type: 
  Country: None (occurrence: None)
  Receive Date: 20070723
  Receipt Date: 20070713
  Transmission Date: 20080115
  Serious: Yes (Death)
  Sender: FDA-Public Use
  Company Number: DE-BRISTOL-MYERS SQUIBB COMPANY-13852744

PATIENT
  Sex: Female

DRUGS (1)
  1. ENDOXAN [Suspect]
     Indication: CHEMOTHERAPY

REACTIONS (2)
  - DEATH [None]
  - MOUTH ULCERATION [None]
